FAERS Safety Report 16698659 (Version 2)
Quarter: 2019Q3

REPORT INFORMATION
  Report Type: Spontaneous
  Country: JP (occurrence: JP)
  Receive Date: 20190813
  Receipt Date: 20190821
  Transmission Date: 20191004
  Serious: No
  Sender: FDA-Public Use
  Company Number: JP-GLAXOSMITHKLINE-JP2019JPN143842

PATIENT
  Age: 75 Year
  Sex: Female
  Weight: 52 kg

DRUGS (7)
  1. XYZAL TABLETS [Concomitant]
     Dosage: 5 MG, QD(BEFORE BEDTIME)
  2. SYMBICORT TURBUHALER (BUDESONIDE + FORMOTEROL FUMARATE DIHYDRATE) [Concomitant]
     Dosage: 2 DF, BID
  3. ZOLPIDEM TARTRATE OD TABLET [Concomitant]
     Dosage: 10 MG, QD(BEFORE BEDTIME)
  4. TAKECAB TABLETS [Concomitant]
     Dosage: 20 MG, QD(AFTER DINNER)
  5. SINGULAIR OD TABLETS [Concomitant]
     Dosage: 10 MG, QD(BEFORE BEDTIME)
  6. MEPOLIZUMAB [Suspect]
     Active Substance: MEPOLIZUMAB
     Indication: ASTHMA
     Dosage: 100 MG, EVERY 4 WEEKS
     Route: 058
     Dates: start: 20190702, end: 20190807
  7. SPIOLTO RESPIMAT [Concomitant]
     Active Substance: OLODATEROL HYDROCHLORIDE\TIOTROPIUM BROMIDE MONOHYDRATE
     Dosage: 2 DF, QD

REACTIONS (5)
  - Therapeutic product effect incomplete [Unknown]
  - Hypoalbuminaemia [Not Recovered/Not Resolved]
  - Feeding disorder [Unknown]
  - Eosinophil count increased [Not Recovered/Not Resolved]
  - Cough [Unknown]

NARRATIVE: CASE EVENT DATE: 2019
